FAERS Safety Report 17035464 (Version 1)
Quarter: 2019Q4

REPORT INFORMATION
  Report Type: Spontaneous
  Country: GB (occurrence: GB)
  Receive Date: 20191115
  Receipt Date: 20191115
  Transmission Date: 20200122
  Serious: Yes (Life-Threatening, Hospitalization)
  Sender: FDA-Public Use
  Company Number: GB-TEVA-2019-GB-1137442

PATIENT
  Age: 60 Year
  Sex: Female

DRUGS (5)
  1. FERROUS GLUCONATE [Concomitant]
     Active Substance: FERROUS GLUCONATE
  2. RANITIDINE. [Concomitant]
     Active Substance: RANITIDINE
  3. PARACETAMOL [Concomitant]
     Active Substance: ACETAMINOPHEN
  4. ATORVASTATIN [Concomitant]
     Active Substance: ATORVASTATIN
  5. SODIUM VALPROATE [Suspect]
     Active Substance: VALPROATE SODIUM
     Route: 065

REACTIONS (1)
  - Stevens-Johnson syndrome [Unknown]
